FAERS Safety Report 19487339 (Version 1)
Quarter: 2021Q3

REPORT INFORMATION
  Report Type: Spontaneous
  Country: US (occurrence: US)
  Receive Date: 20210702
  Receipt Date: 20210702
  Transmission Date: 20211014
  Serious: No
  Sender: FDA-Public Use
  Company Number: US-AMNEAL PHARMACEUTICALS-2021-AMRX-01619

PATIENT
  Age: 30 Year
  Sex: Female

DRUGS (2)
  1. ELURYNG [Suspect]
     Active Substance: ETHINYL ESTRADIOL\ETONOGESTREL
     Dosage: UNK; RE?STARTED
     Route: 067
     Dates: start: 2021
  2. ELURYNG [Suspect]
     Active Substance: ETHINYL ESTRADIOL\ETONOGESTREL
     Indication: CONTRACEPTION
     Dosage: 1 DOSAGE FORM, EVERY 3 WEEKS
     Route: 067
     Dates: start: 20210327, end: 20210410

REACTIONS (6)
  - Medical device site pain [Unknown]
  - Device breakage [Unknown]
  - Product substitution issue [Unknown]
  - Dysuria [Recovered/Resolved]
  - Device physical property issue [Unknown]
  - Medical device site injury [Unknown]

NARRATIVE: CASE EVENT DATE: 20210410
